FAERS Safety Report 23655286 (Version 2)
Quarter: 2024Q1

REPORT INFORMATION
  Report Type: Spontaneous
  Country: DE (occurrence: DE)
  Receive Date: 20240320
  Receipt Date: 20240329
  Transmission Date: 20240410
  Serious: Yes (Other)
  Sender: FDA-Public Use
  Company Number: DE-SAMSUNG BIOEPIS-SB-2024-07952

PATIENT
  Sex: Female

DRUGS (2)
  1. ETANERCEPT [Suspect]
     Active Substance: ETANERCEPT
     Indication: Psoriatic arthropathy
     Route: 058
  2. ETANERCEPT [Suspect]
     Active Substance: ETANERCEPT
     Route: 065

REACTIONS (5)
  - Intestinal obstruction [Unknown]
  - Diarrhoea [Unknown]
  - Oesophagitis [Unknown]
  - Sinusitis [Unknown]
  - Respiratory tract infection [Unknown]
